FAERS Safety Report 10669312 (Version 2)
Quarter: 2015Q1

REPORT INFORMATION
  Report Type: Spontaneous
  Country: SE (occurrence: SE)
  Receive Date: 20141222
  Receipt Date: 20150206
  Transmission Date: 20150720
  Serious: Yes (Other)
  Sender: FDA-Public Use
  Company Number: SE-ELI_LILLY_AND_COMPANY-SE201412004002

PATIENT
  Age: 43 Year
  Sex: Female

DRUGS (2)
  1. XENICAL [Concomitant]
     Active Substance: ORLISTAT
     Indication: OVERWEIGHT
     Dosage: 120 MG, TID
     Dates: start: 20141107
  2. ZYPADHERA [Suspect]
     Active Substance: OLANZAPINE PAMOATE
     Indication: SCHIZOPHRENIA, PARANOID TYPE
     Dosage: 300 MG, 2/M
     Route: 030
     Dates: start: 20130419

REACTIONS (3)
  - Fatigue [Unknown]
  - Dizziness [Unknown]
  - Discomfort [Unknown]
